FAERS Safety Report 4464860-0 (Version None)
Quarter: 2004Q4

REPORT INFORMATION
  Report Type: 
  Country: None (occurrence: None)
  Receive Date: 20041004
  Receipt Date: 20031203
  Transmission Date: 20050328
  Serious: No
  Sender: FDA-Public Use
  Company Number: 356714

PATIENT
  Age: 70 Year
  Sex: Female

DRUGS (1)
  1. COREG [Suspect]
     Dosage: 6.25MG TWICE PER DAY
     Route: 048
     Dates: start: 20031021, end: 20031026

REACTIONS (4)
  - ASTHENIA [None]
  - DRUG INEFFECTIVE [None]
  - FEELING ABNORMAL [None]
  - PHARMACEUTICAL PRODUCT COMPLAINT [None]
